FAERS Safety Report 23634643 (Version 1)
Quarter: 2024Q1

REPORT INFORMATION
  Report Type: Spontaneous
  Country: US (occurrence: US)
  Receive Date: 20240315
  Receipt Date: 20240315
  Transmission Date: 20240410
  Serious: Yes (Other)
  Sender: FDA-Public Use
  Company Number: US-BAXTER-2024BAX014646

PATIENT
  Age: 5 Year
  Sex: Male

DRUGS (3)
  1. CEFEPIME [Suspect]
     Active Substance: CEFEPIME HYDROCHLORIDE
     Indication: Evidence based treatment
     Dosage: (50 MILLIGRAMS PER KILOGRAM PER DOSE) ADMINISTERED EVERY 8 HOURS, TWO DOSES)
     Route: 065
  2. DAPTOMYCIN [Concomitant]
     Active Substance: DAPTOMYCIN
     Dosage: ON DAY 26 OF A PLANNED 28-DAY COURSE VIA A PERIPHERALLY INSERTED CENTRAL CATHETER, TREATMENT CONTINU
     Route: 050
  3. RIVAROXABAN [Concomitant]
     Active Substance: RIVAROXABAN
     Indication: Thrombosis
     Dosage: ON DAY 29 OF TREATMENT
     Route: 065

REACTIONS (5)
  - Drug-induced liver injury [Recovered/Resolved]
  - Transaminases increased [Recovered/Resolved]
  - Blood bilirubin increased [Recovered/Resolved]
  - Jaundice [Unknown]
  - Abdominal tenderness [Unknown]
